FAERS Safety Report 12521218 (Version 1)
Quarter: 2016Q2

REPORT INFORMATION
  Report Type: Spontaneous
  Country: US (occurrence: None)
  Receive Date: 20160630
  Receipt Date: 20160630
  Transmission Date: 20160815
  Serious: Yes (Other)
  Sender: FDA-Public Use
  Company Number: None

PATIENT
  Age: 53 Year
  Sex: Female
  Weight: 102.51 kg

DRUGS (1)
  1. ESCITALOPRAM TABLET 20MG [Suspect]
     Active Substance: ESCITALOPRAM OXALATE
     Indication: DEPRESSION
     Route: 048
     Dates: start: 20081208, end: 20090408

REACTIONS (2)
  - Vertigo [None]
  - Balance disorder [None]

NARRATIVE: CASE EVENT DATE: 20090408
